FAERS Safety Report 5396760-6 (Version None)
Quarter: 2007Q3

REPORT INFORMATION
  Report Type: 
  Country: None (occurrence: None)
  Receive Date: 20070725
  Receipt Date: 20070531
  Transmission Date: 20080115
  Serious: Yes (Hospitalization, Other)
  Sender: FDA-Public Use
  Company Number: US-PURDUE-USA_2007_0028176

PATIENT
  Sex: Female
  Weight: 75 kg

DRUGS (2)
  1. OXYCONTIN [Suspect]
     Indication: PAIN
     Dosage: UNK, SEE TEXT
     Dates: start: 19990101, end: 20050801
  2. MORPHINE [Concomitant]
     Indication: PAIN MANAGEMENT
     Dates: start: 20000101, end: 20030101

REACTIONS (14)
  - ASTHMA [None]
  - COMA [None]
  - CRYING [None]
  - DRUG DEPENDENCE [None]
  - DRUG WITHDRAWAL SYNDROME [None]
  - FEELING OF BODY TEMPERATURE CHANGE [None]
  - HALLUCINATION [None]
  - INSOMNIA [None]
  - INTENTIONAL DRUG MISUSE [None]
  - MALAISE [None]
  - MEMORY IMPAIRMENT [None]
  - OVERDOSE [None]
  - VOMITING [None]
  - WEIGHT DECREASED [None]
